FAERS Safety Report 6730956-3 (Version None)
Quarter: 2010Q2

REPORT INFORMATION
  Report Type: 
  Country: None (occurrence: None)
  Receive Date: 20100518
  Receipt Date: 20100510
  Transmission Date: 20101027
  Serious: Yes (Other)
  Sender: FDA-Public Use
  Company Number: DE-BAYER-201025110GPV

PATIENT
  Age: 33 Year
  Sex: Female
  Weight: 51 kg

DRUGS (1)
  1. ULTRAVIST 300 [Suspect]
     Indication: UROGRAM
     Dates: start: 20100114

REACTIONS (5)
  - ABASIA [None]
  - BALANCE DISORDER [None]
  - DIZZINESS [None]
  - DYSPNOEA [None]
  - ERYTHEMA [None]
